FAERS Safety Report 8131331-X (Version None)
Quarter: 2012Q1

REPORT INFORMATION
  Report Type: 
  Country: None (occurrence: None)
  Receive Date: 20120213
  Receipt Date: 20120209
  Transmission Date: 20120608
  Serious: Yes (Other)
  Sender: FDA-Public Use
  Company Number: BR-BAYER-2012-013554

PATIENT
  Age: 20 Year
  Sex: Female

DRUGS (1)
  1. BETASERON [Suspect]
     Indication: MULTIPLE SCLEROSIS
     Dosage: 0.25 DF, UNK
     Route: 058
     Dates: start: 20120207

REACTIONS (13)
  - HYPERHIDROSIS [None]
  - VOMITING [None]
  - HYPOAESTHESIA [None]
  - LIMB DISCOMFORT [None]
  - DIZZINESS [None]
  - ASTHENIA [None]
  - HYPOAESTHESIA ORAL [None]
  - NAUSEA [None]
  - HEADACHE [None]
  - DYSPNOEA [None]
  - DIARRHOEA [None]
  - MUSCULAR WEAKNESS [None]
  - PARAESTHESIA [None]
